FAERS Safety Report 8038368-X (Version None)
Quarter: 2012Q1

REPORT INFORMATION
  Report Type: 
  Country: None (occurrence: None)
  Receive Date: 20120111
  Receipt Date: 20111207
  Transmission Date: 20120608
  Serious: No
  Sender: FDA-Public Use
  Company Number: US-AMGEN-USASP2011060433

PATIENT
  Age: 51 Year
  Sex: Male
  Weight: 104.76 kg

DRUGS (8)
  1. ZOLOFT [Concomitant]
     Dosage: 100 MG, DAILY
  2. ENBREL [Suspect]
     Indication: RHEUMATOID ARTHRITIS
     Dosage: 50 MG, QWK
     Route: 058
     Dates: start: 20100410
  3. FOLIC ACID [Concomitant]
     Dosage: 1 MG, DAILY
  4. PREDNISONE TAB [Concomitant]
     Dosage: 1 MG, DAILY
  5. METHOTREXATE [Concomitant]
     Indication: RHEUMATOID ARTHRITIS
     Dosage: 25 MG, QWK
     Route: 048
     Dates: start: 20090601
  6. LEVOTHYROXINE SODIUM [Concomitant]
     Dosage: 100 MCG
     Route: 048
  7. CELEBREX [Concomitant]
     Dosage: 200 MG, ONCE DAILY
     Route: 048
  8. PREVACID [Concomitant]
     Dosage: 30 MG, ONCE DAILY

REACTIONS (6)
  - PARANASAL SINUS HYPERSECRETION [None]
  - MALAISE [None]
  - ABDOMINAL DISCOMFORT [None]
  - SINUS CONGESTION [None]
  - PAIN [None]
  - PNEUMONIA [None]
